FAERS Safety Report 5725060-7 (Version None)
Quarter: 2008Q2

REPORT INFORMATION
  Report Type: 
  Country: None (occurrence: None)
  Receive Date: 20080501
  Receipt Date: 20080421
  Transmission Date: 20081010
  Serious: Yes (Disabling)
  Sender: FDA-Public Use
  Company Number: GR-ELI_LILLY_AND_COMPANY-GR200804005166

PATIENT
  Age: 56 Year
  Sex: Male
  Weight: 100 kg

DRUGS (4)
  1. CYMBALTA [Suspect]
     Indication: DEPRESSION
     Dosage: 30 MG, DAILY (1/D)
     Route: 048
  2. CYMBALTA [Suspect]
     Dosage: 90 MG, DAILY (1/D)
     Route: 048
  3. ATACAND HCT [Concomitant]
     Dosage: HALF A TABLET DAILY (1/D)
     Route: 048
  4. AMITRIPTYLINE WITH PERPHENAZINE [Concomitant]
     Dosage: 4/25, DAILY (1/D)
     Route: 048

REACTIONS (5)
  - DEPRESSION [None]
  - GAIT DISTURBANCE [None]
  - LETHARGY [None]
  - MUSCULOSKELETAL STIFFNESS [None]
  - SOMNOLENCE [None]
